FAERS Safety Report 5891686-3 (Version None)
Quarter: 2008Q3

REPORT INFORMATION
  Report Type: 
  Country: None (occurrence: None)
  Receive Date: 20080922
  Receipt Date: 20080908
  Transmission Date: 20090109
  Serious: Yes (Other)
  Sender: FDA-Public Use
  Company Number: TR-ELI_LILLY_AND_COMPANY-TR200809001858

PATIENT

DRUGS (4)
  1. HUMULIN R [Suspect]
     Indication: GESTATIONAL DIABETES
     Dosage: 4 IU, 3/D
     Route: 064
     Dates: start: 20080101, end: 20080731
  2. HUMULIN N [Suspect]
     Indication: GESTATIONAL DIABETES
     Dosage: 6 U, DAILY (1/D)
     Route: 064
     Dates: start: 20080101, end: 20080731
  3. ANTIANAEMIC PREPARATIONS [Concomitant]
     Indication: ANAEMIA
     Dosage: UNK, DAILY (1/D)
  4. INSULIN [Concomitant]
     Indication: GESTATIONAL DIABETES

REACTIONS (2)
  - DRUG EXPOSURE DURING PREGNANCY [None]
  - PREMATURE BABY [None]
